FAERS Safety Report 9883325 (Version 2)
Quarter: 2014Q1

REPORT INFORMATION
  Report Type: Spontaneous
  Country: US (occurrence: US)
  Receive Date: 20140210
  Receipt Date: 20140211
  Transmission Date: 20141002
  Serious: Yes (Death)
  Sender: FDA-Public Use
  Company Number: US-ROCHE-1343855

PATIENT
  Sex: Male
  Weight: 104.42 kg

DRUGS (2)
  1. KLONOPIN [Suspect]
     Indication: MUSCLE RELAXANT THERAPY
     Route: 065
  2. MORPHINE [Concomitant]
     Route: 065

REACTIONS (1)
  - Completed suicide [Fatal]
